FAERS Safety Report 24287908 (Version 4)
Quarter: 2025Q1

REPORT INFORMATION
  Report Type: Spontaneous
  Country: JP (occurrence: JP)
  Receive Date: 20240905
  Receipt Date: 20250320
  Transmission Date: 20250409
  Serious: Yes (Hospitalization, Other)
  Sender: EISAI
  Company Number: JP-Eisai-202406692_LEN-EC_P_1

PATIENT
  Sex: Female
  Weight: 70 kg

DRUGS (15)
  1. LENVATINIB [Suspect]
     Active Substance: LENVATINIB
     Indication: Endometrial cancer
     Dates: start: 20230927, end: 202401
  2. LENVATINIB [Suspect]
     Active Substance: LENVATINIB
     Dates: start: 202404, end: 20240511
  3. LENVATINIB [Suspect]
     Active Substance: LENVATINIB
     Dates: start: 202405, end: 20240514
  4. LENVATINIB [Suspect]
     Active Substance: LENVATINIB
     Dates: start: 20240515
  5. LENVATINIB [Suspect]
     Active Substance: LENVATINIB
     Dates: start: 202406
  6. LENVATINIB [Suspect]
     Active Substance: LENVATINIB
  7. LENVATINIB [Suspect]
     Active Substance: LENVATINIB
     Dates: start: 2024, end: 20240916
  8. LENVATINIB [Suspect]
     Active Substance: LENVATINIB
  9. KEYTRUDA [Suspect]
     Active Substance: PEMBROLIZUMAB
     Indication: Endometrial cancer
     Dates: start: 20230630, end: 202402
  10. KEYTRUDA [Suspect]
     Active Substance: PEMBROLIZUMAB
     Dates: start: 20240816, end: 20240904
  11. TELMISARTAN [Concomitant]
     Active Substance: TELMISARTAN
     Indication: Product used for unknown indication
  12. AMLODIPINE [Concomitant]
     Active Substance: AMLODIPINE BESYLATE
     Indication: Product used for unknown indication
  13. MIRTAZAPINE [Concomitant]
     Active Substance: MIRTAZAPINE
     Indication: Product used for unknown indication
  14. GASTER [Concomitant]
     Active Substance: FAMOTIDINE
     Indication: Product used for unknown indication
  15. POLARAMINE [Concomitant]
     Active Substance: DEXCHLORPHENIRAMINE MALEATE
     Indication: Product used for unknown indication

REACTIONS (24)
  - Decreased appetite [Unknown]
  - Dehydration [Recovering/Resolving]
  - Weight decreased [Unknown]
  - Nausea [Unknown]
  - Nephropathy toxic [Unknown]
  - Infusion related reaction [Recovering/Resolving]
  - Electrocardiogram QT prolonged [Recovering/Resolving]
  - Adrenal insufficiency [Recovering/Resolving]
  - Hypothyroidism [Unknown]
  - Palmar-plantar erythrodysaesthesia syndrome [Unknown]
  - Constipation [Unknown]
  - Prerenal failure [Unknown]
  - Ureteric stenosis [Unknown]
  - Cancer pain [Unknown]
  - Neuralgia [Unknown]
  - Visceral pain [Unknown]
  - Headache [Unknown]
  - Hypertension [Recovered/Resolved]
  - Malaise [Unknown]
  - Proteinuria [Unknown]
  - Depression [Unknown]
  - Cystitis [Recovering/Resolving]
  - Diarrhoea [Unknown]
  - Eastern Cooperative Oncology Group performance status worsened [Unknown]

NARRATIVE: CASE EVENT DATE: 20230101
